FAERS Safety Report 24329220 (Version 1)
Quarter: 2024Q3

REPORT INFORMATION
  Report Type: Report from Study
  Country: US (occurrence: US)
  Receive Date: 20240917
  Receipt Date: 20240917
  Transmission Date: 20241017
  Serious: Yes (Hospitalization, Other)
  Sender: ROCHE
  Company Number: US-ROCHE-3521935

PATIENT
  Age: 47 Year
  Sex: Male

DRUGS (19)
  1. OCREVUS [Suspect]
     Active Substance: OCRELIZUMAB
     Indication: Primary progressive multiple sclerosis
     Dosage: DATE OF MOST RECENT INFUSION: 26/SEP/2023
     Route: 065
     Dates: start: 202309, end: 202311
  2. OCREVUS [Suspect]
     Active Substance: OCRELIZUMAB
     Indication: Relapsing-remitting multiple sclerosis
  3. SATRALIZUMAB [Suspect]
     Active Substance: SATRALIZUMAB
     Indication: Neuromyelitis optica spectrum disorder
     Route: 058
  4. KEPPRA [Concomitant]
     Active Substance: LEVETIRACETAM
  5. MACROBID [Concomitant]
     Active Substance: NITROFURANTOIN\NITROFURANTOIN MONOHYDRATE
  6. LIORESAL [Concomitant]
     Active Substance: BACLOFEN
  7. VITAMIN B12 [Concomitant]
     Active Substance: CYANOCOBALAMIN
  8. CYMBALTA [Concomitant]
     Active Substance: DULOXETINE HYDROCHLORIDE
  9. FLONASE [Concomitant]
     Active Substance: FLUTICASONE PROPIONATE
  10. NEURONTIN [Concomitant]
     Active Substance: GABAPENTIN
  11. TORADOL [Concomitant]
     Active Substance: KETOROLAC TROMETHAMINE
  12. SINGULAIR [Concomitant]
     Active Substance: MONTELUKAST SODIUM
  13. PRILOSEC [Concomitant]
     Active Substance: OMEPRAZOLE MAGNESIUM
  14. POTASSIUM GLUCONATE [Concomitant]
     Active Substance: POTASSIUM GLUCONATE
  15. VIAGRA [Concomitant]
     Active Substance: SILDENAFIL CITRATE
  16. VESICARE [Concomitant]
     Active Substance: SOLIFENACIN SUCCINATE
  17. ATIVAN [Concomitant]
     Active Substance: LORAZEPAM
  18. SOLIFENACIN [Concomitant]
     Active Substance: SOLIFENACIN
  19. KETOROLAC [Concomitant]
     Active Substance: KETOROLAC TROMETHAMINE

REACTIONS (14)
  - Seizure [Not Recovered/Not Resolved]
  - Fatigue [Unknown]
  - Deafness [Unknown]
  - Sleep disorder [Unknown]
  - Visual impairment [Unknown]
  - Sepsis [Recovered/Resolved]
  - White blood cell count increased [Recovered/Resolved]
  - Red blood cell count increased [Recovered/Resolved]
  - Off label use [Unknown]
  - Urinary tract infection [Recovered/Resolved]
  - Neurogenic bladder [Not Recovered/Not Resolved]
  - Rash [Not Recovered/Not Resolved]
  - Balance disorder [Not Recovered/Not Resolved]
  - Muscular weakness [Not Recovered/Not Resolved]

NARRATIVE: CASE EVENT DATE: 20230901
